FAERS Safety Report 11784643 (Version 9)
Quarter: 2016Q2

REPORT INFORMATION
  Report Type: Report from Study
  Country: US (occurrence: US)
  Receive Date: 20151130
  Receipt Date: 20160623
  Transmission Date: 20160815
  Serious: Yes (Hospitalization)
  Sender: FDA-Public Use
  Company Number: US-ACTELION-A-NJ2014-104356

PATIENT
  Age: 54 Year
  Sex: Male

DRUGS (8)
  1. VELETRI [Suspect]
     Active Substance: EPOPROSTENOL
     Dosage: 22 NG/KG, PER MIN
     Route: 042
  2. VELETRI [Suspect]
     Active Substance: EPOPROSTENOL
     Dosage: 10 NG/KG, PER MIN
     Route: 042
     Dates: start: 20140815
  3. VELETRI [Suspect]
     Active Substance: EPOPROSTENOL
     Dosage: 54 NG/KG, PER MIN
     Route: 042
  4. AMILORIDE [Concomitant]
     Active Substance: AMILORIDE
  5. VELETRI [Suspect]
     Active Substance: EPOPROSTENOL
     Dosage: 28 NG/KG, PER MIN
     Route: 042
     Dates: start: 20140815
  6. VELETRI [Suspect]
     Active Substance: EPOPROSTENOL
     Indication: PULMONARY HYPERTENSION
     Dosage: 12 NG/KG, PER MIN
     Route: 042
     Dates: start: 20140721
  7. IMODIUM [Concomitant]
     Active Substance: LOPERAMIDE HYDROCHLORIDE
  8. VELETRI [Suspect]
     Active Substance: EPOPROSTENOL
     Dosage: 38 NG/KG, PER MIN
     Route: 042

REACTIONS (29)
  - Liver transplant [Recovering/Resolving]
  - Transplantation complication [Unknown]
  - Transfusion [Unknown]
  - Diuretic therapy [Unknown]
  - Platelet count decreased [Unknown]
  - Pain in jaw [Unknown]
  - Pigmentation disorder [Unknown]
  - Dyspnoea [Unknown]
  - Feeling abnormal [Unknown]
  - Nausea [Unknown]
  - Headache [Unknown]
  - Epistaxis [Recovered/Resolved]
  - Fatigue [Unknown]
  - Paracentesis [Unknown]
  - Portal shunt procedure [Unknown]
  - Device issue [Unknown]
  - Tremor [Unknown]
  - Swelling [Unknown]
  - Infection [Unknown]
  - Ascites [Unknown]
  - Diarrhoea [Unknown]
  - Oedema [Unknown]
  - Abdominal infection [Unknown]
  - Dehydration [Unknown]
  - Abdominal distension [Unknown]
  - Peripheral swelling [Unknown]
  - Weight decreased [Unknown]
  - Decreased appetite [Unknown]
  - Rash [Unknown]
